FAERS Safety Report 16650512 (Version 1)
Quarter: 2019Q3

REPORT INFORMATION
  Report Type: Spontaneous
  Country: US (occurrence: US)
  Receive Date: 20190617
  Receipt Date: 20190617
  Transmission Date: 20191004
  Serious: Yes (Hospitalization)
  Sender: FDA-Public Use
  Company Number: None

PATIENT
  Age: 62 Year
  Sex: Male
  Weight: 109.95 kg

DRUGS (1)
  1. HYDROCHLOROTHIAZIDE. [Suspect]
     Active Substance: HYDROCHLOROTHIAZIDE
     Indication: HYPERTENSION
     Route: 048
     Dates: start: 20060806, end: 20190530

REACTIONS (6)
  - Hyponatraemia [None]
  - Asthenia [None]
  - Fluid intake reduced [None]
  - Pain in extremity [None]
  - Hypophagia [None]
  - Blood creatinine increased [None]

NARRATIVE: CASE EVENT DATE: 20190529
